FAERS Safety Report 21671998 (Version 1)
Quarter: 2022Q4

REPORT INFORMATION
  Report Type: Report from Study
  Country: US (occurrence: US)
  Receive Date: 20221202
  Receipt Date: 20221202
  Transmission Date: 20230112
  Serious: No
  Sender: FDA-Public Use
  Company Number: US-ABBVIE-4180096

PATIENT
  Sex: Female

DRUGS (4)
  1. HUMIRA [Suspect]
     Active Substance: ADALIMUMAB
     Indication: Psoriatic arthropathy
  2. Moderna [Concomitant]
     Indication: COVID-19 immunisation
     Route: 030
     Dates: start: 20210201, end: 20210201
  3. Moderna [Concomitant]
     Indication: COVID-19 immunisation
     Route: 030
     Dates: start: 20210225, end: 20210225
  4. Moderna [Concomitant]
     Indication: COVID-19 immunisation
     Route: 030
     Dates: start: 20211029, end: 20211029

REACTIONS (4)
  - Feeling hot [Not Recovered/Not Resolved]
  - Chills [Not Recovered/Not Resolved]
  - Malaise [Not Recovered/Not Resolved]
  - Fatigue [Not Recovered/Not Resolved]
